FAERS Safety Report 6370086-6 (Version None)
Quarter: 2009Q3

REPORT INFORMATION
  Report Type: 
  Country: None (occurrence: None)
  Receive Date: 20090923
  Receipt Date: 20070504
  Transmission Date: 20100115
  Serious: Yes (Hospitalization)
  Sender: FDA-Public Use
  Company Number: US-ASTRAZENECA-2006UW21338

PATIENT
  Age: 11743 Day
  Sex: Male
  Weight: 74.8 kg

DRUGS (6)
  1. SEROQUEL [Suspect]
     Indication: SLEEP DISORDER
     Dosage: 25-600 MG
     Route: 048
     Dates: start: 20030225, end: 20060411
  2. SEROQUEL [Suspect]
     Indication: BIPOLAR DISORDER
     Dosage: 25-600 MG
     Route: 048
     Dates: start: 20030225, end: 20060411
  3. SEROQUEL [Suspect]
     Dosage: 25-600 MG
     Route: 048
     Dates: start: 20030427, end: 20060411
  4. SEROQUEL [Suspect]
     Dosage: 25-600 MG
     Route: 048
     Dates: start: 20030427, end: 20060411
  5. PAXIL [Concomitant]
     Indication: DEPRESSION
     Dosage: 20-40 MG
     Route: 048
     Dates: start: 20030225
  6. PREVACID [Concomitant]
     Route: 048
     Dates: start: 20041010

REACTIONS (5)
  - ABDOMINAL PAIN [None]
  - PANCREATITIS [None]
  - PANCREATITIS ACUTE [None]
  - PANCREATITIS CHRONIC [None]
  - PANCREATITIS RELAPSING [None]
